FAERS Safety Report 12088540 (Version 1)
Quarter: 2016Q1

REPORT INFORMATION
  Report Type: Report from Study
  Country: US (occurrence: US)
  Receive Date: 20160218
  Receipt Date: 20160218
  Transmission Date: 20160526
  Serious: Yes (Death, Other)
  Sender: FDA-Public Use
  Company Number: US-AMGEN-USASL2016018125

PATIENT
  Age: 98 Year
  Sex: Male

DRUGS (2)
  1. PROLIA [Suspect]
     Active Substance: DENOSUMAB
     Indication: BONE LOSS
  2. PROLIA [Suspect]
     Active Substance: DENOSUMAB
     Indication: PROSTATE CANCER
     Dosage: UNK
     Route: 065
     Dates: start: 201112, end: 201501

REACTIONS (2)
  - Death [Fatal]
  - Off label use [Unknown]
